FAERS Safety Report 23366063 (Version 1)
Quarter: 2024Q1

REPORT INFORMATION
  Report Type: Spontaneous
  Country: CN (occurrence: CN)
  Receive Date: 20240104
  Receipt Date: 20240104
  Transmission Date: 20240409
  Serious: Yes (Other)
  Sender: FDA-Public Use
  Company Number: CN-JNJFOC-20231278147

PATIENT
  Age: 64 Year
  Sex: Male

DRUGS (6)
  1. DARZALEX [Suspect]
     Active Substance: DARATUMUMAB
     Indication: Primary amyloidosis
     Route: 065
     Dates: start: 20211104
  2. DARZALEX [Suspect]
     Active Substance: DARATUMUMAB
     Route: 065
  3. VELCADE [Suspect]
     Active Substance: BORTEZOMIB
     Indication: Primary amyloidosis
     Dosage: DAY AT 1, 4, 8, AND 11
     Route: 065
     Dates: start: 20211104
  4. VELCADE [Suspect]
     Active Substance: BORTEZOMIB
     Dosage: DAYS 1 AND 4
     Route: 065
  5. VELCADE [Suspect]
     Active Substance: BORTEZOMIB
     Dosage: DAYS 8
     Route: 065
  6. DEXAMETHASONE [Suspect]
     Active Substance: DEXAMETHASONE
     Indication: Primary amyloidosis
     Dosage: DAY AT 1, 2, 4, 5, 8, 9, 11, AND 12
     Route: 065
     Dates: start: 20211104

REACTIONS (6)
  - Hypokalaemia [Unknown]
  - Infection [Unknown]
  - Abdominal distension [Unknown]
  - Diarrhoea [Unknown]
  - Oedema [Unknown]
  - Off label use [Unknown]
